FAERS Safety Report 10565611 (Version 1)
Quarter: 2014Q4

REPORT INFORMATION
  Report Type: Spontaneous
  Country: US (occurrence: None)
  Receive Date: 20141103
  Receipt Date: 20141103
  Transmission Date: 20150529
  Serious: No
  Sender: FDA-Public Use
  Company Number: 2014-00096

PATIENT
  Age: 42 Year
  Sex: Female
  Weight: 61.24 kg

DRUGS (1)
  1. ZICAM COLD REMEDY NASAL GEL [Suspect]
     Active Substance: ZINC ACETATE\ZINC GLUCONATE
     Route: 045
     Dates: start: 20141029

REACTIONS (2)
  - Burning sensation [None]
  - Anosmia [None]

NARRATIVE: CASE EVENT DATE: 20141029
